FAERS Safety Report 5864231-6 (Version None)
Quarter: 2008Q3

REPORT INFORMATION
  Report Type: 
  Country: None (occurrence: None)
  Receive Date: 20080829
  Receipt Date: 20080818
  Transmission Date: 20090109
  Serious: Yes (Congenital Anomaly)
  Sender: FDA-Public Use
  Company Number: BR-ROCHE-582092

PATIENT

DRUGS (12)
  1. MYCOPHENOLATE MOFETIL [Suspect]
     Route: 064
  2. MYCOPHENOLATE MOFETIL [Suspect]
     Route: 064
  3. MYCOPHENOLATE MOFETIL [Suspect]
     Route: 064
     Dates: start: 20030601
  4. CYCLOSPORINE [Concomitant]
     Dosage: REPORTED AS CYCLOSPORINE.MAINTAINED TO A TARGET TROUGH LEVEL OF 400 NG/ML
     Dates: start: 20030601
  5. PREDNISONE TAB [Concomitant]
     Dates: start: 20030601
  6. PREDNISONE TAB [Concomitant]
  7. SOLU-MEDROL [Concomitant]
     Dosage: THREE 500 MG DAILY BOLUS
  8. TACROLIMUS [Concomitant]
  9. TACROLIMUS [Concomitant]
  10. PRAVASTATIN [Concomitant]
  11. DILTIAZEM HCL [Concomitant]
     Dosage: REPORTED AS 'DILTIAZEN'
  12. CARBAMAZEPINE [Concomitant]

REACTIONS (6)
  - CLEFT PALATE [None]
  - EAR MALFORMATION [None]
  - LIVE BIRTH [None]
  - MICROPHTHALMOS [None]
  - PULMONARY VALVE STENOSIS [None]
  - UMBILICAL HERNIA [None]
